FAERS Safety Report 6170196-2 (Version None)
Quarter: 2009Q2

REPORT INFORMATION
  Report Type: 
  Country: None (occurrence: None)
  Receive Date: 20090428
  Receipt Date: 20090420
  Transmission Date: 20091009
  Serious: Yes (Hospitalization, Other)
  Sender: FDA-Public Use
  Company Number: PHHY2009JP14320

PATIENT
  Age: 32 Year
  Sex: Female

DRUGS (3)
  1. VOLTAREN [Suspect]
     Indication: BACK PAIN
     Route: 048
  2. LORCAM [Suspect]
     Indication: BACK PAIN
     Route: 048
  3. ANTIPSYCHOTICS [Concomitant]
     Dosage: UNK

REACTIONS (3)
  - GASTRIC ULCER [None]
  - OVERDOSE [None]
  - WHITE BLOOD CELL COUNT INCREASED [None]
